FAERS Safety Report 7283538-1 (Version None)
Quarter: 2011Q1

REPORT INFORMATION
  Report Type: 
  Country: None (occurrence: None)
  Receive Date: 20110209
  Receipt Date: 20110131
  Transmission Date: 20110831
  Serious: Yes (Hospitalization, Other)
  Sender: FDA-Public Use
  Company Number: PHEH2006US02049

PATIENT
  Sex: Female
  Weight: 89.342 kg

DRUGS (19)
  1. XANAX [Concomitant]
     Dosage: UNK, PRN
  2. PERCOCET [Concomitant]
  3. HYDROCHLOROTHIAZIDE [Concomitant]
     Dosage: 25 MG, QD
     Route: 048
  4. GEMCITABINE [Concomitant]
  5. ARIMIDEX [Concomitant]
  6. METOPROLOL [Concomitant]
  7. ASPIRIN [Concomitant]
  8. AREDIA [Suspect]
  9. ZOMETA [Suspect]
     Dates: end: 20051213
  10. PREMARIN [Concomitant]
     Dosage: 0.625 MG, QD
     Route: 048
  11. POTASSIUM [Concomitant]
  12. ASPIRIN [Concomitant]
  13. TAXOL [Concomitant]
  14. CELEXA [Concomitant]
  15. MULTI-VITAMIN [Concomitant]
  16. IBUPROFEN [Concomitant]
  17. LIPITOR [Concomitant]
     Dosage: 10 MG, QD
     Route: 048
  18. ANASTROZOLE [Concomitant]
     Dosage: 1 MG, QD
  19. TAMOXIFEN CITRATE [Concomitant]

REACTIONS (47)
  - CHILLS [None]
  - PULMONARY CONGESTION [None]
  - OSTEONECROSIS OF JAW [None]
  - PAIN IN JAW [None]
  - CARPAL TUNNEL SYNDROME [None]
  - HAEMATURIA [None]
  - DYSPNOEA [None]
  - PNEUMOTHORAX [None]
  - X-RAY ABNORMAL [None]
  - OVARIAN MASS [None]
  - POSITRON EMISSION TOMOGRAM ABNORMAL [None]
  - CHANGE OF BOWEL HABIT [None]
  - OEDEMA PERIPHERAL [None]
  - SINUSITIS [None]
  - PNEUMONIA [None]
  - HYPOAESTHESIA [None]
  - BLOOD PRESSURE INCREASED [None]
  - CHYLOTHORAX [None]
  - TINNITUS [None]
  - PLEURAL EFFUSION [None]
  - BONE DISORDER [None]
  - DIVERTICULUM INTESTINAL [None]
  - HAEMORRHOIDS [None]
  - MIDDLE INSOMNIA [None]
  - HEART RATE INCREASED [None]
  - COUGH [None]
  - BRONCHITIS [None]
  - OSTEOARTHRITIS [None]
  - CHEST PAIN [None]
  - COMPUTERISED TOMOGRAM THORAX ABNORMAL [None]
  - CONSTIPATION [None]
  - COLONOSCOPY ABNORMAL [None]
  - INTERVERTEBRAL DISC DEGENERATION [None]
  - METASTASES TO BONE [None]
  - PAIN [None]
  - URINARY TRACT INFECTION [None]
  - COLLAPSE OF LUNG [None]
  - ASPIRATION PLEURAL CAVITY [None]
  - HYPERCHOLESTEROLAEMIA [None]
  - PULMONARY EMBOLISM [None]
  - ACUTE CORONARY SYNDROME [None]
  - WHEEZING [None]
  - COMPUTERISED TOMOGRAM ABDOMEN ABNORMAL [None]
  - METASTATIC NEOPLASM [None]
  - COLONIC POLYP [None]
  - OSTEOPENIA [None]
  - BACK PAIN [None]
